FAERS Safety Report 16291982 (Version 3)
Quarter: 2022Q3

REPORT INFORMATION
  Report Type: Spontaneous
  Country: US (occurrence: None)
  Receive Date: 20190509
  Receipt Date: 20220726
  Transmission Date: 20221027
  Serious: Yes (Other)
  Sender: FDA-Public Use
  Company Number: 2019SE63069

PATIENT
  Age: 41 Year
  Sex: Male

DRUGS (76)
  1. PRILOSEC [Suspect]
     Active Substance: OMEPRAZOLE MAGNESIUM
     Indication: Dyspepsia
     Route: 048
     Dates: start: 1990, end: 20131215
  2. PRILOSEC [Suspect]
     Active Substance: OMEPRAZOLE MAGNESIUM
     Indication: Dyspepsia
     Route: 065
     Dates: start: 20151123
  3. PRILOSEC [Suspect]
     Active Substance: OMEPRAZOLE MAGNESIUM
     Indication: Dyspepsia
     Route: 048
     Dates: start: 1990, end: 201312
  4. PRILOSEC [Suspect]
     Active Substance: OMEPRAZOLE MAGNESIUM
     Indication: Dyspepsia
     Dosage: GENERIC
     Route: 065
     Dates: start: 2013
  5. PRILOSEC OTC [Suspect]
     Active Substance: OMEPRAZOLE MAGNESIUM
     Indication: Dyspepsia
     Route: 048
  6. PRILOSEC OTC [Suspect]
     Active Substance: OMEPRAZOLE MAGNESIUM
     Indication: Dyspepsia
     Route: 048
     Dates: start: 2004, end: 2006
  7. PROTONIX [Suspect]
     Active Substance: PANTOPRAZOLE SODIUM
     Indication: Dyspepsia
     Route: 065
     Dates: start: 2010, end: 2015
  8. PROTONIX [Suspect]
     Active Substance: PANTOPRAZOLE SODIUM
     Indication: Dyspepsia
     Dosage: GENERIC
     Route: 065
     Dates: start: 2011
  9. VIAGRA [Concomitant]
     Active Substance: SILDENAFIL CITRATE
  10. RENAGEL [Concomitant]
     Active Substance: SEVELAMER HYDROCHLORIDE
  11. SENSIPAR [Concomitant]
     Active Substance: CINACALCET HYDROCHLORIDE
  12. PENTOXIFYLLINE [Concomitant]
     Active Substance: PENTOXIFYLLINE
  13. RANITIDINE [Concomitant]
     Active Substance: RANITIDINE
  14. FUROSEMIDE [Concomitant]
     Active Substance: FUROSEMIDE
  15. PROCARDIA [Concomitant]
     Active Substance: NIFEDIPINE
  16. CLONIDINE [Concomitant]
     Active Substance: CLONIDINE
  17. EMOLLIENTS [Concomitant]
     Active Substance: EMOLLIENTS
  18. ZEMPLAR [Concomitant]
     Active Substance: PARICALCITOL
  19. NITROGLYCERIN [Concomitant]
     Active Substance: NITROGLYCERIN
  20. NEPHRO VITE RX [Concomitant]
     Active Substance: ASCORBIC ACID\BIOTIN\CALCIUM PANTOTHENATE\CYANOCOBALAMIN\FOLIC ACID\NIACINAMIDE\PYRIDOXINE HYDROCHLO
  21. ALPRAZOLAM [Concomitant]
     Active Substance: ALPRAZOLAM
  22. TYLENOL [Concomitant]
     Active Substance: ACETAMINOPHEN
  23. PERSANTINE [Concomitant]
     Active Substance: DIPYRIDAMOLE
  24. AMINOPHYLLINE [Concomitant]
     Active Substance: AMINOPHYLLINE
  25. ZOLPIDEM TARTRATE [Concomitant]
     Active Substance: ZOLPIDEM TARTRATE
  26. PROGRAF [Concomitant]
     Active Substance: TACROLIMUS
     Indication: Renal transplant
     Route: 065
     Dates: start: 2010
  27. CRESTOR [Concomitant]
     Active Substance: ROSUVASTATIN CALCIUM
     Indication: Blood cholesterol abnormal
     Route: 065
     Dates: start: 2015
  28. MAGNESIUM OXIDE [Concomitant]
     Active Substance: MAGNESIUM OXIDE
  29. VITAMIN B COMPLEX [Concomitant]
     Active Substance: CYANOCOBALAMIN\DEXPANTHENOL\NIACINAMIDE\PYRIDOXINE HYDROCHLORIDE\RIBOFLAVIN 5^-PHOSPHATE SODIUM\THIA
  30. NEURONTIN [Concomitant]
     Active Substance: GABAPENTIN
  31. PNEUMOVAX 23 [Concomitant]
     Active Substance: PNEUMOCOCCAL VACCINE, POLYVALENT 23
  32. CELLCEPT [Concomitant]
     Active Substance: MYCOPHENOLATE MOFETIL
  33. PHOSPHORUS [Concomitant]
     Active Substance: PHOSPHORUS
  34. ASPIRIN [Concomitant]
     Active Substance: ASPIRIN
  35. FOLATE SODIUM [Concomitant]
     Active Substance: FOLATE SODIUM
  36. FINASTERIDE [Concomitant]
     Active Substance: FINASTERIDE
  37. CIALIS [Concomitant]
     Active Substance: TADALAFIL
  38. UNSPECIFIED INGREDIENT [Concomitant]
     Active Substance: UNSPECIFIED INGREDIENT
  39. PLAVIX [Concomitant]
     Active Substance: CLOPIDOGREL BISULFATE
     Indication: Cardiac disorder
     Route: 065
     Dates: start: 2015
  40. LYRICA [Concomitant]
     Active Substance: PREGABALIN
  41. VYVANSE [Concomitant]
     Active Substance: LISDEXAMFETAMINE DIMESYLATE
  42. CELEXA [Concomitant]
     Active Substance: CITALOPRAM HYDROBROMIDE
  43. FLOMAX [Concomitant]
     Active Substance: TAMSULOSIN HYDROCHLORIDE
  44. SODIUM CHLORIDE [Concomitant]
     Active Substance: SODIUM CHLORIDE
  45. ROLAIDS [Concomitant]
     Active Substance: CALCIUM CARBONATE\MAGNESIUM HYDROXIDE
  46. MAALOX ANTACID [Concomitant]
     Active Substance: ALUMINUM HYDROXIDE\DIMETHICONE\MAGNESIUM HYDROXIDE
  47. WARFARIN [Concomitant]
     Active Substance: WARFARIN
  48. ACETAMINOPHEN\CODEINE PHOSPHATE [Concomitant]
     Active Substance: ACETAMINOPHEN\CODEINE PHOSPHATE
  49. TIZANIDINE [Concomitant]
     Active Substance: TIZANIDINE
  50. PRAVASTATIN [Concomitant]
     Active Substance: PRAVASTATIN
  51. ISOSORBIDE [Concomitant]
     Active Substance: ISOSORBIDE
  52. ALDIOXA [Concomitant]
     Active Substance: ALDIOXA
  53. CIPROFLOXACIN [Concomitant]
     Active Substance: CIPROFLOXACIN
  54. FERROUS SULFATE [Concomitant]
     Active Substance: FERROUS SULFATE
  55. CLINDAMYCIN [Concomitant]
     Active Substance: CLINDAMYCIN
  56. CALCITRIOL [Concomitant]
     Active Substance: CALCITRIOL
  57. INDOMETHACIN [Concomitant]
     Active Substance: INDOMETHACIN
  58. POLYETHYLENE GLYCOL [Concomitant]
     Active Substance: POLYETHYLENE GLYCOL
  59. AMIODARONE [Concomitant]
     Active Substance: AMIODARONE
  60. ALLOPURINOL [Concomitant]
     Active Substance: ALLOPURINOL
  61. LORAZEPAM [Concomitant]
     Active Substance: LORAZEPAM
  62. MONTELUKAST SODIUM [Concomitant]
     Active Substance: MONTELUKAST SODIUM
  63. SODIUM POLYSTYRENE SULFONATE [Concomitant]
     Active Substance: SODIUM POLYSTYRENE SULFONATE
  64. MINOCYCLINE [Concomitant]
     Active Substance: MINOCYCLINE HYDROCHLORIDE
  65. POTASSIUM CHLORIDE [Concomitant]
     Active Substance: POTASSIUM CHLORIDE
  66. AMITRIPTYLINE [Concomitant]
     Active Substance: AMITRIPTYLINE
  67. RANEXA [Concomitant]
     Active Substance: RANOLAZINE
  68. COLCHICINE [Concomitant]
     Active Substance: COLCHICINE
  69. HYDRALAZINE [Concomitant]
     Active Substance: HYDRALAZINE HYDROCHLORIDE
  70. ONDANSETRON [Concomitant]
     Active Substance: ONDANSETRON
  71. MUCINEX [Concomitant]
     Active Substance: GUAIFENESIN
  72. ENOXAPARIN [Concomitant]
     Active Substance: ENOXAPARIN
  73. BRIMONIDINE TARTRATE [Concomitant]
     Active Substance: BRIMONIDINE TARTRATE
  74. VALIUM [Concomitant]
     Active Substance: DIAZEPAM
  75. TAMSULOSIN [Concomitant]
     Active Substance: TAMSULOSIN
  76. IBUPROFEN [Concomitant]
     Active Substance: IBUPROFEN
     Dates: start: 20120814

REACTIONS (6)
  - Chronic kidney disease [Not Recovered/Not Resolved]
  - End stage renal disease [Unknown]
  - Renal failure [Unknown]
  - Nephrogenic anaemia [Unknown]
  - Chronic kidney disease-mineral and bone disorder [Unknown]
  - Dyspepsia [Not Recovered/Not Resolved]

NARRATIVE: CASE EVENT DATE: 19980101
